FAERS Safety Report 24092906 (Version 3)
Quarter: 2024Q3

REPORT INFORMATION
  Report Type: Report from Study
  Country: US (occurrence: US)
  Receive Date: 20240715
  Receipt Date: 20240813
  Transmission Date: 20241016
  Serious: Yes (Other)
  Sender: ALNYLAM PHARMACEUTICALS
  Company Number: US-ALNYLAM PHARMACEUTICALS, INC.-ALN-2024-003839

PATIENT

DRUGS (3)
  1. GIVLAARI [Suspect]
     Active Substance: GIVOSIRAN SODIUM
     Indication: Product used for unknown indication
     Dosage: 189 MILLIGRAM, EVERY 28 DAYS
     Route: 058
     Dates: start: 20230914, end: 20230914
  2. GIVLAARI [Suspect]
     Active Substance: GIVOSIRAN SODIUM
     Dosage: 189 MILLIGRAM, EVERY 28 DAYS
     Route: 058
  3. GIVLAARI [Suspect]
     Active Substance: GIVOSIRAN SODIUM
     Dosage: 189 MILLIGRAM (ONCE EVERY 28 DAYS)
     Route: 058

REACTIONS (1)
  - Porphyria acute [Unknown]
